FAERS Safety Report 21273859 (Version 1)
Quarter: 2022Q3

REPORT INFORMATION
  Report Type: Other
  Country: CA (occurrence: CA)
  Receive Date: 20220831
  Receipt Date: 20220831
  Transmission Date: 20221027
  Serious: Yes (Other)
  Sender: FDA-Public Use
  Company Number: CA-CELLTRION INC.-2022CA003072

PATIENT

DRUGS (5)
  1. RITUXIMAB [Suspect]
     Active Substance: RITUXIMAB
     Indication: Immune-mediated myositis
     Dosage: UNK
     Route: 065
  2. METHOTREXATE [Suspect]
     Active Substance: METHOTREXATE
     Indication: Immune-mediated myositis
     Dosage: UNK
     Route: 065
  3. ACETAMINOPHEN [Concomitant]
     Active Substance: ACETAMINOPHEN
     Dosage: 650.0 MILLIGRAM
     Route: 048
  4. DIPHENHYDRAMINE [Concomitant]
     Active Substance: DIPHENHYDRAMINE
     Dosage: 50.0 MILLIGRAM
     Route: 048
  5. PREDNISONE [Concomitant]
     Active Substance: PREDNISONE
     Dosage: UNK
     Route: 065

REACTIONS (11)
  - Consciousness fluctuating [Recovered/Resolved]
  - Hepatic enzyme increased [Recovered/Resolved]
  - Pallor [Recovered/Resolved]
  - Skin discolouration [Recovered/Resolved]
  - Hypertension [Recovered/Resolved]
  - Hypoxia [Recovered/Resolved]
  - Infusion related reaction [Recovered/Resolved]
  - Muscle tightness [Recovered/Resolved]
  - Wheezing [Recovered/Resolved]
  - Treatment failure [Recovered/Resolved]
  - Off label use [Unknown]
